FAERS Safety Report 18307651 (Version 2)
Quarter: 2020Q4

REPORT INFORMATION
  Report Type: Spontaneous
  Country: CA (occurrence: CA)
  Receive Date: 20200924
  Receipt Date: 20201027
  Transmission Date: 20210113
  Serious: Yes (Other)
  Sender: FDA-Public Use
  Company Number: NVSC2020CA257168

PATIENT
  Sex: Male
  Weight: 3.58 kg

DRUGS (5)
  1. METOPROLOL. [Suspect]
     Active Substance: METOPROLOL
     Indication: FOETAL EXPOSURE DURING PREGNANCY
     Dosage: UNK (MATERNAL DOSE (2.5 MG)
     Route: 064
  2. METOPROLOL. [Suspect]
     Active Substance: METOPROLOL
     Dosage: UNK (MATERNAL DOSE (2.5 MG)
     Route: 064
  3. METOPROLOL. [Suspect]
     Active Substance: METOPROLOL
     Dosage: UNK (MATERNAL DOSE (5 MG)
     Route: 064
  4. METOPROLOL. [Suspect]
     Active Substance: METOPROLOL
     Dosage: UNK (MATERNAL DOSE (5 MG)
     Route: 064
  5. METOPROLOL. [Suspect]
     Active Substance: METOPROLOL
     Dosage: MATERNAL DOSE (50 MG, BID)
     Route: 064

REACTIONS (2)
  - Premature baby [Unknown]
  - Foetal exposure during pregnancy [Unknown]
